FAERS Safety Report 8899028 (Version 2)
Quarter: 2012Q4

REPORT INFORMATION
  Report Type: 
  Country: GR (occurrence: GR)
  Receive Date: 20121109
  Receipt Date: 20121116
  Transmission Date: 20130627
  Serious: Yes (Other)
  Sender: FDA-Public Use
  Company Number: GR-AMGEN-GRCSP2012069866

PATIENT
  Age: 73 Year
  Sex: Female
  Weight: 70 kg

DRUGS (9)
  1. PROLIA [Suspect]
     Indication: OSTEOPOROSIS POSTMENOPAUSAL
     Dosage: UNK
     Route: 058
     Dates: start: 20120510
  2. ANTIHYPERTENSIVES [Concomitant]
  3. CALCIUM [Concomitant]
  4. VITAMIN D /00107901/ [Concomitant]
  5. ANTIINFLAMMATORY AGENTS [Concomitant]
  6. OLARTAN PLUS [Concomitant]
     Indication: HYPERTENSION
     Dosage: UNK UNK, qd
     Route: 048
     Dates: start: 2005
  7. ACE INHIBITORS [Concomitant]
  8. ANTIINFLAMMATORY AGENTS, NON-STEROIDS [Concomitant]
  9. ASPIRIN [Concomitant]

REACTIONS (1)
  - Pemphigoid [Recovering/Resolving]
